FAERS Safety Report 4975545-6 (Version None)
Quarter: 2006Q2

REPORT INFORMATION
  Report Type: 
  Country: None (occurrence: None)
  Receive Date: 20060410
  Receipt Date: 20060330
  Transmission Date: 20061013
  Serious: No
  Sender: FDA-Public Use
  Company Number: 2006-139819-NL

PATIENT
  Age: 47 Year
  Sex: Female

DRUGS (4)
  1. MIRTAZAPINE [Suspect]
     Indication: DEPRESSION
     Dosage: 15 MG QD
     Route: 048
     Dates: start: 20051207
  2. PAROXETINE HYDROCHLORIDE [Suspect]
     Indication: DEPRESSION
     Dosage: 20 MG QD
     Route: 048
     Dates: end: 20051206
  3. ZOLPIDEM TARTRATE [Concomitant]
  4. ALPRAZOLAM [Concomitant]

REACTIONS (5)
  - DRUG WITHDRAWAL SYNDROME [None]
  - HEADACHE [None]
  - NERVOUS SYSTEM DISORDER [None]
  - URINARY RETENTION [None]
  - VERTIGO [None]
